FAERS Safety Report 6114032-9 (Version None)
Quarter: 2009Q1

REPORT INFORMATION
  Report Type: 
  Country: None (occurrence: None)
  Receive Date: 20090312
  Receipt Date: 19960917
  Transmission Date: 20090719
  Serious: No
  Sender: FDA-Public Use
  Company Number: US-ABBOTT-08P-163-0453765-00

PATIENT
  Age: 41 Year
  Sex: Female

DRUGS (5)
  1. DEPAKOTE [Suspect]
     Indication: DRUG USE FOR UNKNOWN INDICATION
  2. ZINC [Concomitant]
     Indication: DRUG USE FOR UNKNOWN INDICATION
  3. SELENIUM [Concomitant]
     Indication: DRUG USE FOR UNKNOWN INDICATION
  4. L-CARNITINE [Concomitant]
     Indication: DRUG USE FOR UNKNOWN INDICATION
  5. HALOPERIDOL [Concomitant]
     Indication: DRUG USE FOR UNKNOWN INDICATION

REACTIONS (1)
  - AMMONIA INCREASED [None]
